FAERS Safety Report 25261392 (Version 1)
Quarter: 2025Q2

REPORT INFORMATION
  Report Type: Spontaneous
  Country: TH (occurrence: TH)
  Receive Date: 20250501
  Receipt Date: 20250501
  Transmission Date: 20250717
  Serious: Yes (Other)
  Sender: BRISTOL MYERS SQUIBB
  Company Number: TH-BRISTOL-MYERS SQUIBB COMPANY-2025-063230

PATIENT

DRUGS (2)
  1. OPDIVO [Suspect]
     Active Substance: NIVOLUMAB
     Indication: Hepatocellular carcinoma
  2. YERVOY [Suspect]
     Active Substance: IPILIMUMAB
     Indication: Hepatocellular carcinoma

REACTIONS (1)
  - Autoimmune haemolytic anaemia [Unknown]
